FAERS Safety Report 9024348 (Version 2)
Quarter: 2013Q1

REPORT INFORMATION
  Report Type: Spontaneous
  Country: US (occurrence: US)
  Receive Date: 20130121
  Receipt Date: 20130228
  Transmission Date: 20140127
  Serious: Yes (Other)
  Sender: FDA-Public Use
  Company Number: US-SHIRE-ALL1-2013-00158

PATIENT
  Sex: 0

DRUGS (3)
  1. INTUNIV [Suspect]
     Indication: ATTENTION DEFICIT/HYPERACTIVITY DISORDER
     Dosage: UNK, 1X/DAY:QD
     Route: 048
  2. INTUNIV [Suspect]
     Dosage: 1 MG, UNKNOWN
     Route: 048
  3. INTUNIV [Suspect]
     Dosage: 2 MG, UNKNOWN
     Route: 048

REACTIONS (1)
  - Psychotic disorder [Recovered/Resolved]
